FAERS Safety Report 8275086-7 (Version None)
Quarter: 2012Q2

REPORT INFORMATION
  Report Type: 
  Country: None (occurrence: None)
  Receive Date: 20120411
  Receipt Date: 20120329
  Transmission Date: 20120825
  Serious: Yes (Other)
  Sender: FDA-Public Use
  Company Number: DE-MYLANLABS-2012S1006726

PATIENT
  Sex: Female

DRUGS (1)
  1. FINASTERIDE [Suspect]
     Dosage: LAST EXPOSURE 3 MONTHS PRECONCEPTIONAL
     Route: 065

REACTIONS (3)
  - ABORTION SPONTANEOUS [None]
  - PREMATURE LABOUR [None]
  - EXPOSURE VIA FATHER [None]
